FAERS Safety Report 6525603-X (Version None)
Quarter: 2010Q1

REPORT INFORMATION
  Report Type: 
  Country: None (occurrence: None)
  Receive Date: 20100104
  Receipt Date: 20091223
  Transmission Date: 20100710
  Serious: Yes (Hospitalization, Other)
  Sender: FDA-Public Use
  Company Number: TW-ROCHE-665101

PATIENT
  Sex: Male

DRUGS (11)
  1. MIRCERA [Suspect]
     Route: 058
     Dates: start: 20090806, end: 20091002
  2. MIRCERA [Suspect]
     Route: 058
     Dates: end: 20091002
  3. ARANESP [Suspect]
     Route: 058
     Dates: start: 20090428, end: 20090806
  4. ARANESP [Suspect]
     Route: 058
     Dates: start: 20091103
  5. TELMISARTAN [Suspect]
     Indication: HYPERTENSION
     Route: 048
     Dates: start: 20090514
  6. FOLIC ACID [Concomitant]
     Route: 048
  7. FUROSEMIDE [Concomitant]
     Dosage: FREQUENCY: BID PRN
     Route: 048
  8. NORVASC [Concomitant]
     Route: 048
  9. ATENOLOL [Concomitant]
     Route: 048
  10. EUMOVATE CREAM [Concomitant]
     Route: 061
  11. GENTAMICIN [Concomitant]
     Dosage: FREQUENCY: QN
     Route: 047

REACTIONS (3)
  - BONE MARROW FAILURE [None]
  - HAEMOGLOBIN DECREASED [None]
  - HYPOPARATHYROIDISM [None]
